FAERS Safety Report 24343296 (Version 1)
Quarter: 2024Q3

REPORT INFORMATION
  Report Type: Spontaneous
  Country: CN (occurrence: CN)
  Receive Date: 20240920
  Receipt Date: 20240920
  Transmission Date: 20241016
  Serious: Yes (Other)
  Sender: JOHNSON AND JOHNSON
  Company Number: CN-JNJFOC-20240940246

PATIENT
  Age: 31 Year
  Sex: Male
  Weight: 83 kg

DRUGS (8)
  1. CHILDRENS MOTRIN [Suspect]
     Active Substance: IBUPROFEN
     Indication: Pyrexia
     Route: 048
     Dates: start: 20230905
  2. IBUPROFEN [Suspect]
     Active Substance: IBUPROFEN
     Indication: Analgesic therapy
     Route: 048
     Dates: start: 20240902, end: 20240903
  3. CEFUROXIME SODIUM [Suspect]
     Active Substance: CEFUROXIME SODIUM
     Indication: Pyrexia
     Route: 042
     Dates: start: 20240902, end: 20240905
  4. AMINOPHENAZONE\ANTIPYRINE\BARBITAL [Suspect]
     Active Substance: AMINOPHENAZONE\ANTIPYRINE\BARBITAL
     Indication: Pyrexia
     Route: 030
     Dates: start: 20240902
  5. MOXIFLOXACIN HYDROCHLORIDE [Suspect]
     Active Substance: MOXIFLOXACIN HYDROCHLORIDE\MOXIFLOXACIN HYDROCHLORIDE MONOHYDRATE
     Indication: Infection
     Route: 042
     Dates: start: 20240905, end: 20240912
  6. TYLENOL [Concomitant]
     Active Substance: ACETAMINOPHEN
     Indication: Pyrexia
     Route: 048
     Dates: start: 20240827, end: 20240829
  7. AMOXICILLIN [Concomitant]
     Active Substance: AMOXICILLIN
     Indication: Upper respiratory tract infection
     Route: 048
     Dates: start: 20240827, end: 20240829
  8. IBUPROFEN [Concomitant]
     Active Substance: IBUPROFEN
     Indication: Analgesic therapy
     Route: 048
     Dates: start: 20240827, end: 20240829

REACTIONS (5)
  - Off label use [Unknown]
  - Gamma-glutamyltransferase increased [Unknown]
  - Blood alkaline phosphatase increased [Unknown]
  - Aspartate aminotransferase increased [Unknown]
  - Alanine aminotransferase increased [Unknown]

NARRATIVE: CASE EVENT DATE: 20240901
